FAERS Safety Report 9236604 (Version 1)
Quarter: 2013Q2

REPORT INFORMATION
  Report Type: Spontaneous
  Country: FR (occurrence: FR)
  Receive Date: 20130417
  Receipt Date: 20130417
  Transmission Date: 20140414
  Serious: Yes (Hospitalization, Other)
  Sender: FDA-Public Use
  Company Number: FR-ELI_LILLY_AND_COMPANY-FR201304001740

PATIENT
  Age: 64 Year
  Sex: Female

DRUGS (6)
  1. CYMBALTA [Suspect]
     Indication: MAJOR DEPRESSION
     Dosage: 120 MG, UNKNOWN
     Route: 048
     Dates: start: 20130116, end: 20130131
  2. ATARAX [Concomitant]
     Indication: ANXIETY
     Dosage: 100 MG, QD
     Dates: start: 20130110
  3. DEPAKOTE [Concomitant]
     Indication: DEPRESSION
     Dosage: 500 MG, QD
     Dates: start: 20130110
  4. SERESTA [Concomitant]
     Indication: ANXIETY
     Dosage: 50 MG, QD
     Dates: start: 20130110
  5. STILNOX [Concomitant]
     Indication: INSOMNIA
     Dosage: 10 MG, QD
     Dates: start: 20130110
  6. MIANSERIN [Concomitant]
     Dosage: 30 MG, UNKNOWN
     Dates: start: 20130110

REACTIONS (4)
  - Skin lesion [Recovered/Resolved]
  - Erythema [Recovered/Resolved]
  - Pruritus [Recovered/Resolved]
  - Insomnia [Recovered/Resolved]
